FAERS Safety Report 8365529-2 (Version None)
Quarter: 2012Q2

REPORT INFORMATION
  Report Type: 
  Country: None (occurrence: None)
  Receive Date: 20120516
  Receipt Date: 20120504
  Transmission Date: 20120825
  Serious: Yes (Death, Hospitalization)
  Sender: FDA-Public Use
  Company Number: US-ELI_LILLY_AND_COMPANY-US201205002078

PATIENT
  Sex: Female

DRUGS (20)
  1. CYMBALTA [Suspect]
     Dosage: UNK UNK, UNKNOWN
     Dates: start: 20110712
  2. ZYVOX [Concomitant]
     Indication: PYREXIA
     Dosage: 600 MG, OTHER
     Route: 048
     Dates: start: 20110718
  3. AMIODARONE HCL [Concomitant]
     Dosage: UNK
     Dates: start: 20110712
  4. ASPIRIN [Concomitant]
     Dosage: UNK
     Dates: start: 20110712
  5. NEXIUM [Concomitant]
     Dosage: UNK
     Dates: start: 20110712
  6. ATROVENT [Concomitant]
  7. SIMVASTATIN [Concomitant]
  8. DORIPENEM [Concomitant]
  9. FENTANYL-100 [Concomitant]
  10. MELATONIN [Concomitant]
  11. METOPROLOL TARTRATE [Concomitant]
  12. MIRAPEX [Concomitant]
  13. MUCOMYST [Concomitant]
  14. WELLBUTRIN [Concomitant]
     Dosage: UNK
     Dates: start: 20110712
  15. SENOKOT [Concomitant]
  16. VERSED [Concomitant]
  17. DITROPAN [Concomitant]
  18. BUMEX [Concomitant]
  19. LISINOPRIL [Concomitant]
  20. COREG [Concomitant]

REACTIONS (4)
  - CORONARY ARTERY BYPASS [None]
  - PNEUMONIA [None]
  - HYPERTHERMIA MALIGNANT [None]
  - RESPIRATORY FAILURE [None]
